FAERS Safety Report 23552619 (Version 1)
Quarter: 2024Q1

REPORT INFORMATION
  Report Type: Spontaneous
  Country: FR (occurrence: FR)
  Receive Date: 20240222
  Receipt Date: 20240222
  Transmission Date: 20240410
  Serious: Yes (Hospitalization)
  Sender: FDA-Public Use
  Company Number: FR-SUN PHARMACEUTICAL INDUSTRIES LTD-2024RR-431809

PATIENT
  Age: 66 Year
  Sex: Male
  Weight: 92 kg

DRUGS (7)
  1. OXALIPLATIN [Suspect]
     Active Substance: OXALIPLATIN
     Indication: Colon cancer
     Dosage: UNK
     Route: 040
     Dates: start: 20231011, end: 20231011
  2. LEUCOVORIN CALCIUM [Suspect]
     Active Substance: LEUCOVORIN CALCIUM
     Indication: Colon cancer
     Dosage: UNK
     Route: 040
     Dates: start: 20231011, end: 20231011
  3. FLUOROURACIL [Suspect]
     Active Substance: FLUOROURACIL
     Indication: Colon cancer
     Dosage: UNK
     Route: 040
     Dates: start: 20231011, end: 20231011
  4. EMEND [Suspect]
     Active Substance: APREPITANT
     Indication: Nausea
     Dosage: 80 MILLIGRAM, DAILY
     Route: 048
     Dates: start: 20231012, end: 20231013
  5. EMEND [Suspect]
     Active Substance: APREPITANT
     Dosage: 125 MILLIGRAM, DAILY
     Route: 048
     Dates: start: 20231011, end: 20231011
  6. SPASFON [Concomitant]
     Indication: Product used for unknown indication
     Dosage: UNK
     Route: 065
  7. ACETAMINOPHEN [Concomitant]
     Active Substance: ACETAMINOPHEN
     Indication: Product used for unknown indication
     Dosage: UNK
     Route: 065

REACTIONS (1)
  - Pancreatitis acute [Not Recovered/Not Resolved]

NARRATIVE: CASE EVENT DATE: 20231015
